FAERS Safety Report 9000646 (Version 1)
Quarter: 2012Q4

REPORT INFORMATION
  Report Type: Spontaneous
  Country: MX (occurrence: None)
  Receive Date: 20121226
  Receipt Date: 20121226
  Transmission Date: 20130627
  Serious: No
  Sender: FDA-Public Use
  Company Number: 1212MEX005958

PATIENT
  Age: 63 Year
  Sex: Female

DRUGS (2)
  1. CEDAX (CEFTIBUTEN) CAPSULE [Suspect]
     Indication: URINARY TRACT INFECTION
     Route: 048
     Dates: start: 20120810, end: 201208
  2. CEDAX (CEFTIBUTEN) CAPSULE [Suspect]
     Indication: URINARY TRACT INFECTION
     Route: 048
     Dates: start: 20121108, end: 20121118

REACTIONS (1)
  - Drug ineffective [None]
